FAERS Safety Report 25468524 (Version 1)
Quarter: 2025Q2

REPORT INFORMATION
  Report Type: Spontaneous
  Country: US (occurrence: US)
  Receive Date: 20250623
  Receipt Date: 20250623
  Transmission Date: 20250716
  Serious: No
  Sender: MYLAN
  Company Number: US-MYLANLABS-2025M1049715

PATIENT
  Sex: Male

DRUGS (1)
  1. WIXELA INHUB [Suspect]
     Active Substance: FLUTICASONE PROPIONATE\SALMETEROL XINAFOATE
     Indication: Bronchitis
     Dosage: 500/50 MICROGRAM, BID (1 PUFF TWICE A DAY ONE IN THE MORNING AND ONE IN THE EVENING)
     Dates: start: 20250607

REACTIONS (2)
  - Device difficult to use [Unknown]
  - Product quality issue [Unknown]
